FAERS Safety Report 11652375 (Version 2)
Quarter: 2015Q4

REPORT INFORMATION
  Report Type: Spontaneous
  Country: US (occurrence: US)
  Receive Date: 20151022
  Receipt Date: 20151027
  Transmission Date: 20160304
  Serious: Yes (Other)
  Sender: FDA-Public Use
  Company Number: US-JNJFOC-20151013161

PATIENT
  Sex: Female
  Weight: 74.39 kg

DRUGS (3)
  1. REMICADE [Suspect]
     Active Substance: INFLIXIMAB
     Indication: ANKYLOSING SPONDYLITIS
     Route: 042
     Dates: start: 2010, end: 2012
  2. REMICADE [Suspect]
     Active Substance: INFLIXIMAB
     Indication: ANKYLOSING SPONDYLITIS
     Route: 042
     Dates: start: 2004, end: 2009
  3. REMICADE [Suspect]
     Active Substance: INFLIXIMAB
     Indication: ANKYLOSING SPONDYLITIS
     Dosage: 6 VIALS
     Route: 042
     Dates: start: 2013

REACTIONS (8)
  - Cytomegalovirus infection [Unknown]
  - Erythema [Unknown]
  - Drug specific antibody present [Unknown]
  - Exposure during pregnancy [Recovered/Resolved]
  - Ankylosing spondylitis [Recovered/Resolved]
  - Dyspnoea [Unknown]
  - Blindness transient [Recovered/Resolved]
  - Corneal disorder [Recovered/Resolved]

NARRATIVE: CASE EVENT DATE: 2012
